FAERS Safety Report 25329892 (Version 1)
Quarter: 2025Q2

REPORT INFORMATION
  Report Type: Spontaneous
  Country: US (occurrence: US)
  Receive Date: 20250519
  Receipt Date: 20250519
  Transmission Date: 20250716
  Serious: No
  Sender: CIPLA
  Company Number: US-CIPLA LTD.-2025US05648

PATIENT

DRUGS (2)
  1. ALBUTEROL [Suspect]
     Active Substance: ALBUTEROL
     Indication: Dyspnoea
     Dosage: UNK, BID (1 PUFF TWICE DAILY)
     Route: 065
     Dates: start: 20250422
  2. ZOTAC [Concomitant]
     Indication: Hypersensitivity
     Route: 065

REACTIONS (2)
  - Drug dose omission by device [Unknown]
  - Product packaging quantity issue [Unknown]

NARRATIVE: CASE EVENT DATE: 20250504
